FAERS Safety Report 8554405-8 (Version None)
Quarter: 2012Q3

REPORT INFORMATION
  Report Type: 
  Country: None (occurrence: None)
  Receive Date: 20120731
  Receipt Date: 20120723
  Transmission Date: 20120928
  Serious: Yes (Hospitalization, Other)
  Sender: FDA-Public Use
  Company Number: US-009507513-1207USA009880

PATIENT

DRUGS (3)
  1. PROAIR (ALBUTEROL SULFATE) [Suspect]
     Dosage: 2-3 PUFFS, UNK, QD
  2. ZOCOR [Suspect]
     Dosage: 40 MG, QD
     Route: 048
  3. LIPITOR [Suspect]
     Dosage: 80 MG, QD

REACTIONS (6)
  - CEREBROVASCULAR ACCIDENT [None]
  - HEART RATE DECREASED [None]
  - BLOOD CHOLESTEROL INCREASED [None]
  - HIGH DENSITY LIPOPROTEIN ABNORMAL [None]
  - DRUG INEFFECTIVE [None]
  - LOW DENSITY LIPOPROTEIN INCREASED [None]
